FAERS Safety Report 5398454-X (Version None)
Quarter: 2007Q3

REPORT INFORMATION
  Report Type: 
  Country: None (occurrence: None)
  Receive Date: 20070725
  Receipt Date: 20070712
  Transmission Date: 20080115
  Serious: Yes (Death, Life-Threatening, Hospitalization, Disabling)
  Sender: FDA-Public Use
  Company Number: 235622K07USA

PATIENT
  Age: 68 Year
  Sex: Female

DRUGS (1)
  1. REBIF [Suspect]
     Indication: MULTIPLE SCLEROSIS
     Dosage: 44 MCG, 3 IN 1 WEEKS, SUBCUTANEOUS
     Route: 058
     Dates: start: 20050107, end: 20070101

REACTIONS (3)
  - ASTHENIA [None]
  - CEREBRAL HAEMORRHAGE [None]
  - DEPRESSED LEVEL OF CONSCIOUSNESS [None]
